FAERS Safety Report 5060501-2 (Version None)
Quarter: 2006Q2

REPORT INFORMATION
  Report Type: 
  Country: None (occurrence: None)
  Receive Date: 20060630
  Receipt Date: 20051111
  Transmission Date: 20061013
  Serious: Yes (Hospitalization)
  Sender: FDA-Public Use
  Company Number: VISP-PR-0511S-0595

PATIENT
  Age: 40 Year
  Sex: Male
  Weight: 84.8226 kg

DRUGS (5)
  1. VISIPAQUE [Suspect]
     Indication: DRUG USE FOR UNKNOWN INDICATION
     Dosage: 294 ML, SINGLE DOSE, CORONARY
     Dates: start: 20050608, end: 20050608
  2. ANGIOMAX [Concomitant]
  3. EPTIFIBATIDE [Concomitant]
  4. FLUTICASONE PROPIONATE SALMETEROL XINAFOATE (ADVAIR) [Concomitant]
  5. SALBUTAMOL (SALBUTAMOL) [Concomitant]

REACTIONS (1)
  - RENAL FAILURE ACUTE [None]
